FAERS Safety Report 15090438 (Version 2)
Quarter: 2018Q4

REPORT INFORMATION
  Report Type: Report from Study
  Country: US (occurrence: US)
  Receive Date: 20180629
  Receipt Date: 20181129
  Transmission Date: 20190204
  Serious: Yes (Hospitalization, Other)
  Sender: FDA-Public Use
  Company Number: US-REGENERON PHARMACEUTICALS, INC.-2018-27390

PATIENT

DRUGS (1)
  1. EYLEA [Suspect]
     Active Substance: AFLIBERCEPT
     Indication: MACULAR DEGENERATION
     Dosage: 2 MG 0.05ML,EVERY 4 WEEKS, INTO THE RIGHT EYE
     Route: 031

REACTIONS (2)
  - Eye haemorrhage [Unknown]
  - Hospitalisation [Not Recovered/Not Resolved]
